FAERS Safety Report 5624236-7 (Version None)
Quarter: 2008Q1

REPORT INFORMATION
  Report Type: 
  Country: None (occurrence: None)
  Receive Date: 20080213
  Receipt Date: 20080206
  Transmission Date: 20080703
  Serious: Yes (Other)
  Sender: FDA-Public Use
  Company Number: PHEH2008US01643

PATIENT
  Sex: Male

DRUGS (1)
  1. ZOMETA [Suspect]
     Indication: LUNG ADENOCARCINOMA METASTATIC
     Dosage: 4 MG, ONCE/SINGLE
     Dates: start: 20080129

REACTIONS (2)
  - LIP BLISTER [None]
  - LIP SWELLING [None]
